FAERS Safety Report 8340583-2 (Version None)
Quarter: 2012Q2

REPORT INFORMATION
  Report Type: 
  Country: None (occurrence: None)
  Receive Date: 20120507
  Receipt Date: 20120426
  Transmission Date: 20120825
  Serious: Yes (Hospitalization, Other)
  Sender: FDA-Public Use
  Company Number: US-SANOFI-AVENTIS-2012SA030150

PATIENT
  Age: 63 Year
  Sex: Female

DRUGS (7)
  1. NOVOLIN 70/30 [Concomitant]
     Dosage: DOSE:50 UNIT(S)
     Route: 058
  2. SYNTHROID [Concomitant]
     Route: 048
  3. CYANOCOBALAMIN [Concomitant]
     Route: 030
  4. GLYBURIDE [Concomitant]
     Route: 048
  5. ROSUVASTATIN [Concomitant]
  6. PLAVIX [Suspect]
     Route: 048
     Dates: start: 20061001
  7. VITAMIN B COMPLEX CAP [Concomitant]

REACTIONS (16)
  - CAROTID ARTERY OCCLUSION [None]
  - DIABETES MELLITUS [None]
  - HEMIPARESIS [None]
  - VIITH NERVE PARALYSIS [None]
  - HYPOTHYROIDISM [None]
  - URINARY TRACT INFECTION [None]
  - FALL [None]
  - THERAPEUTIC RESPONSE DECREASED [None]
  - RESPIRATORY FAILURE [None]
  - VENOUS THROMBOSIS [None]
  - ORAL CANDIDIASIS [None]
  - ANAEMIA [None]
  - CEREBROVASCULAR ACCIDENT [None]
  - HYPOAESTHESIA [None]
  - OBESITY [None]
  - HYPERTENSION [None]
